FAERS Safety Report 5513261-2 (Version None)
Quarter: 2007Q4

REPORT INFORMATION
  Report Type: 
  Country: None (occurrence: None)
  Receive Date: 20071112
  Receipt Date: 20071102
  Transmission Date: 20080405
  Serious: Yes (Hospitalization)
  Sender: FDA-Public Use
  Company Number: SE-ABBOTT-07P-150-0423256-00

PATIENT
  Sex: Male

DRUGS (7)
  1. ERGENYL TABLETS [Suspect]
     Indication: DRUG USE FOR UNKNOWN INDICATION
     Route: 048
     Dates: start: 20070626, end: 20070701
  2. CITALOPRAM [Concomitant]
     Indication: DRUG USE FOR UNKNOWN INDICATION
  3. FERROUS FUMARATE [Concomitant]
     Indication: DRUG USE FOR UNKNOWN INDICATION
  4. DIHYDROERGOTAMINE MESYLATE [Concomitant]
     Indication: DRUG USE FOR UNKNOWN INDICATION
  5. MADOPAR [Concomitant]
     Indication: DRUG USE FOR UNKNOWN INDICATION
  6. ACETYLSALICYLIC ACID SRT [Concomitant]
     Indication: DRUG USE FOR UNKNOWN INDICATION
  7. BICALUTAMIDE [Concomitant]
     Indication: DRUG USE FOR UNKNOWN INDICATION

REACTIONS (2)
  - ORTHOSTATIC HYPOTENSION [None]
  - PETIT MAL EPILEPSY [None]
